FAERS Safety Report 7207227-4 (Version None)
Quarter: 2011Q1

REPORT INFORMATION
  Report Type: 
  Country: None (occurrence: None)
  Receive Date: 20110103
  Receipt Date: 20101222
  Transmission Date: 20110831
  Serious: Yes (Death)
  Sender: FDA-Public Use
  Company Number: CA-ROCHE-749840

PATIENT
  Sex: Female
  Weight: 63.5 kg

DRUGS (5)
  1. METADONE [Concomitant]
  2. STEMETIL [Concomitant]
  3. BEVACIZUMAB [Suspect]
     Indication: BREAST CANCER
     Route: 042
     Dates: start: 20091101
  4. DECADRON [Concomitant]
  5. KYTRIL [Concomitant]

REACTIONS (1)
  - DEATH [None]
